FAERS Safety Report 6542067-0 (Version None)
Quarter: 2010Q1

REPORT INFORMATION
  Report Type: 
  Country: None (occurrence: None)
  Receive Date: 20100119
  Receipt Date: 20100115
  Transmission Date: 20100710
  Serious: No
  Sender: FDA-Public Use
  Company Number: US-ELI_LILLY_AND_COMPANY-US200910007857

PATIENT
  Sex: Male

DRUGS (8)
  1. FORTEO [Suspect]
     Indication: OSTEOPOROSIS
     Dosage: UNK, UNKNOWN
     Dates: start: 20071228, end: 20080101
  2. BONIVA [Concomitant]
     Dosage: 150 MG, UNK
     Dates: start: 20071227
  3. VITAMINS [Concomitant]
     Dosage: UNK, UNKNOWN
  4. COUMADIN [Concomitant]
     Dosage: 5 MG, UNK
  5. UNIRETIC [Concomitant]
     Dosage: UNK D/F, DAILY (1/D)
  6. LIPITOR [Concomitant]
     Dosage: 20 MG, DAILY (1/D)
  7. TAZTIA XT [Concomitant]
     Dosage: 360 MG, DAILY (1/D)
  8. CO-Q10 [Concomitant]
     Dosage: UNK D/F, UNK

REACTIONS (4)
  - DRUG INEFFECTIVE [None]
  - DYSPHAGIA [None]
  - FALL [None]
  - HYPOAESTHESIA [None]
